FAERS Safety Report 5105884-X (Version None)
Quarter: 2006Q3

REPORT INFORMATION
  Report Type: 
  Country: None (occurrence: None)
  Receive Date: 20060915
  Receipt Date: 20060911
  Transmission Date: 20061208
  Serious: Yes (Hospitalization)
  Sender: FDA-Public Use
  Company Number: GB-GLAXOSMITHKLINE-B0438190A

PATIENT
  Age: 77 Year
  Sex: Male
  Weight: 80 kg

DRUGS (6)
  1. ACYCLOVIR [Suspect]
     Indication: HERPES ZOSTER
     Dosage: 800MG TWICE PER DAY
     Route: 048
     Dates: start: 20060310, end: 20060316
  2. AUGMENTIN [Concomitant]
     Indication: URINARY TRACT INFECTION
     Dosage: 375MG THREE TIMES PER DAY
     Route: 048
     Dates: start: 20060306, end: 20060311
  3. FENTANYL [Concomitant]
     Indication: PAIN
     Route: 061
     Dates: start: 20060312
  4. FINASTERIDE [Concomitant]
     Dosage: 5MG PER DAY
     Route: 048
  5. LANSOPRAZOLE [Concomitant]
     Indication: DYSPEPSIA
     Dosage: 30MG PER DAY
     Route: 048
  6. NICORANDIL [Concomitant]
     Indication: ANGINA PECTORIS
     Dosage: 10MG TWICE PER DAY
     Route: 048

REACTIONS (2)
  - HAEMORRHAGE [None]
  - PLATELET COUNT DECREASED [None]
